FAERS Safety Report 24972220 (Version 2)
Quarter: 2025Q1

REPORT INFORMATION
  Report Type: Spontaneous
  Country: KZ (occurrence: KZ)
  Receive Date: 20250214
  Receipt Date: 20250220
  Transmission Date: 20250409
  Serious: Yes (Hospitalization)
  Sender: EMD SERONO INC
  Company Number: KZ-Merck Healthcare KGaA-2025006710

PATIENT
  Age: 32 Year
  Sex: Female

DRUGS (2)
  1. MAVENCLAD [Suspect]
     Active Substance: CLADRIBINE
     Indication: Multiple sclerosis
     Dates: start: 20250106, end: 20250110
  2. METIPRED [Concomitant]
     Active Substance: METHYLPREDNISOLONE
     Indication: Multiple sclerosis relapse

REACTIONS (10)
  - Hepatitis toxic [Unknown]
  - Monocytosis [Unknown]
  - Mean cell haemoglobin increased [Unknown]
  - Mean platelet volume increased [Unknown]
  - Thrombocytopenia [Unknown]
  - Platelet distribution width increased [Unknown]
  - Red cell distribution width increased [Unknown]
  - Hypocholesterolaemia [Unknown]
  - Neutrophil percentage increased [Unknown]
  - Lymphopenia [Unknown]

NARRATIVE: CASE EVENT DATE: 20250107
